FAERS Safety Report 24549006 (Version 1)
Quarter: 2024Q4

REPORT INFORMATION
  Report Type: Report from Study
  Country: DE (occurrence: DE)
  Receive Date: 20241025
  Receipt Date: 20241025
  Transmission Date: 20250114
  Serious: Yes (Death, Other)
  Sender: BAXTER
  Company Number: DE-BAXTER-2024BAX026541

PATIENT
  Age: 41 Year
  Sex: Female

DRUGS (2)
  1. AMINO ACIDS\DEXTROSE\ELECTROLYTES NOS\SOYBEAN OIL [Suspect]
     Active Substance: AMINO ACIDS\DEXTROSE\ELECTROLYTES NOS\SOYBEAN OIL
     Indication: Parenteral nutrition
     Dosage: 1435 ML (MILLILITERS) AT AN UNSPECIFIED FREQUENCY ADMINISTERED VIA CENTRAL VENOUS ROUTE
     Route: 042
     Dates: start: 20240925, end: 20241009
  2. UNSPECIFIED INGREDIENT [Suspect]
     Active Substance: UNSPECIFIED INGREDIENT
     Dosage: UNK
     Route: 065

REACTIONS (1)
  - Death [Fatal]

NARRATIVE: CASE EVENT DATE: 20241009
